FAERS Safety Report 17210798 (Version 1)
Quarter: 2019Q4

REPORT INFORMATION
  Report Type: Spontaneous
  Country: ES (occurrence: ES)
  Receive Date: 20191227
  Receipt Date: 20191227
  Transmission Date: 20200122
  Serious: Yes (Other)
  Sender: FDA-Public Use
  Company Number: ES-BAUSCH-BL-2019-066237

PATIENT
  Age: 50 Year
  Sex: Female

DRUGS (1)
  1. DICLOFENACO [Suspect]
     Active Substance: DICLOFENAC
     Indication: SCIATICA
     Route: 048
     Dates: start: 20191017, end: 201910

REACTIONS (4)
  - Urticaria [Recovered/Resolved]
  - Tongue oedema [Recovered/Resolved]
  - Bronchospasm [Recovered/Resolved]
  - Hypersensitivity [Unknown]

NARRATIVE: CASE EVENT DATE: 201910
